FAERS Safety Report 8163957-1 (Version None)
Quarter: 2012Q1

REPORT INFORMATION
  Report Type: 
  Country: None (occurrence: None)
  Receive Date: 20120103
  Receipt Date: 20111003
  Transmission Date: 20120608
  Serious: No
  Sender: FDA-Public Use
  Company Number: AE-2011-001986

PATIENT
  Age: 58 Year
  Sex: Female
  Weight: 89.3586 kg

DRUGS (10)
  1. RIBAVIRIN [Concomitant]
  2. INCIVEK [Suspect]
     Dosage: 2250 MG (750 MG, 1 IN 8 HR), ORAL
     Route: 048
     Dates: start: 20110916
  3. PEGASYS [Concomitant]
  4. CLONIDINE [Concomitant]
  5. VICODIN [Concomitant]
  6. CELEXA [Concomitant]
  7. LOSARTAN/HCTZ (HYZAAR) [Concomitant]
  8. TRAMADOL HCL [Concomitant]
  9. NEXIUM [Concomitant]
  10. TRAZODONE HCL [Concomitant]

REACTIONS (2)
  - NAUSEA [None]
  - MALAISE [None]
